FAERS Safety Report 8863338 (Version 2)
Quarter: 2012Q4

REPORT INFORMATION
  Report Type: 
  Country: US (occurrence: US)
  Receive Date: 20121025
  Receipt Date: 20121119
  Transmission Date: 20130627
  Serious: Yes (Hospitalization)
  Sender: FDA-Public Use
  Company Number: US-GLAXOSMITHKLINE-A0982943A

PATIENT
  Age: 60 Year
  Sex: Female

DRUGS (1)
  1. FLOLAN [Suspect]
     Indication: PULMONARY HYPERTENSION
     Dosage: 8NG Continuous
     Route: 042
     Dates: start: 20120618

REACTIONS (4)
  - Pain in jaw [Recovered/Resolved]
  - Nausea [Recovered/Resolved]
  - Heart rate irregular [Recovered/Resolved]
  - Heart rate increased [Recovered/Resolved]
